FAERS Safety Report 8499406-3 (Version None)
Quarter: 2012Q3

REPORT INFORMATION
  Report Type: 
  Country: None (occurrence: None)
  Receive Date: 20120710
  Receipt Date: 20120702
  Transmission Date: 20120928
  Serious: Yes (Other)
  Sender: FDA-Public Use
  Company Number: US-US-EMD SERONO, INC.-7145044

PATIENT
  Sex: Female

DRUGS (2)
  1. ACETAMINOPHEN [Concomitant]
     Indication: PREMEDICATION
  2. REBIF [Suspect]
     Indication: MULTIPLE SCLEROSIS
     Route: 058
     Dates: start: 20080102

REACTIONS (11)
  - INTERVERTEBRAL DISC PROTRUSION [None]
  - PRESYNCOPE [None]
  - SPINAL COMPRESSION FRACTURE [None]
  - NERVE INJURY [None]
  - OSTEOPOROSIS [None]
  - BLOOD CHOLESTEROL INCREASED [None]
  - FOOT FRACTURE [None]
  - FALL [None]
  - INJECTION SITE HAEMATOMA [None]
  - HIP FRACTURE [None]
  - NAUSEA [None]
